FAERS Safety Report 5510866-X (Version None)
Quarter: 2007Q4

REPORT INFORMATION
  Report Type: 
  Country: None (occurrence: None)
  Receive Date: 20071107
  Receipt Date: 20071029
  Transmission Date: 20080405
  Serious: Yes (Hospitalization, Other)
  Sender: FDA-Public Use
  Company Number: 2007-00462

PATIENT
  Age: 66 Year
  Sex: Male
  Weight: 102.5 kg

DRUGS (7)
  1. VELCADE [Suspect]
     Indication: MULTIPLE MYELOMA
     Dosage: 1.00 MG/M2, INTRAVENOUS
     Route: 042
     Dates: start: 20060829, end: 20061201
  2. DEXAMETHASONE TAB [Suspect]
     Indication: MULTIPLE MYELOMA
     Dosage: 40.00 MG,
     Dates: start: 20060222, end: 20061117
  3. DOXIL [Suspect]
     Indication: MULTIPLE MYELOMA
     Dosage: 66.00 MG,
     Dates: start: 20061010, end: 20061117
  4. ZOLOFT [Concomitant]
  5. FAMOTIDINE (FAMOTIDINE) TABLET [Concomitant]
  6. ATROVENT HFA (IPRATROPIUM BROMIDE) [Concomitant]
  7. PROCRIT [Concomitant]

REACTIONS (12)
  - ABDOMINAL PAIN [None]
  - ALVEOLITIS ALLERGIC [None]
  - ANAEMIA OF CHRONIC DISEASE [None]
  - CARDIAC FAILURE CONGESTIVE [None]
  - DIARRHOEA [None]
  - DRUG HYPERSENSITIVITY [None]
  - DRUG TOXICITY [None]
  - EOSINOPHILIC PNEUMONIA [None]
  - LUNG INJURY [None]
  - NO THERAPEUTIC RESPONSE [None]
  - PULMONARY HYPERTENSION [None]
  - UPPER RESPIRATORY TRACT INFECTION [None]
